FAERS Safety Report 8237262-9 (Version None)
Quarter: 2012Q1

REPORT INFORMATION
  Report Type: 
  Country: None (occurrence: None)
  Receive Date: 20120327
  Receipt Date: 20120327
  Transmission Date: 20120608
  Serious: Yes (Hospitalization, Other)
  Sender: FDA-Public Use
  Company Number: None

PATIENT
  Age: 2 Month
  Sex: Male
  Weight: 4.0823 kg

DRUGS (3)
  1. GAS RELIEF INFANT DROPS [Suspect]
     Indication: FLATULENCE
     Dosage: 0.3 ML
     Route: 048
     Dates: start: 20120202, end: 20120324
  2. GAS RELIEF INFANT DROPS [Suspect]
     Indication: PROPHYLAXIS
     Dosage: 0.3 ML
     Route: 048
     Dates: start: 20120202, end: 20120324
  3. GAS RELIEF INFANT DROPS [Suspect]

REACTIONS (1)
  - GASTRIC DISORDER [None]
